FAERS Safety Report 4339162-3 (Version None)
Quarter: 2004Q2

REPORT INFORMATION
  Report Type: 
  Country: None (occurrence: None)
  Receive Date: 20040412
  Receipt Date: 20040402
  Transmission Date: 20050107
  Serious: Yes (Disabling)
  Sender: FDA-Public Use
  Company Number: 2004-113819-NL

PATIENT
  Age: 36 Year
  Sex: Female

DRUGS (6)
  1. MIRTAZAPINE [Suspect]
     Indication: ANXIETY
     Dosage: 30 MG QD, ORAL; 7.5 MG, QD; 30 MG QD
     Route: 048
  2. MIRTAZAPINE [Suspect]
     Indication: DEPRESSION
     Dosage: 30 MG QD, ORAL; 7.5 MG, QD; 30 MG QD
     Route: 048
  3. MIRTAZAPINE [Suspect]
     Indication: INSOMNIA
     Dosage: 30 MG QD, ORAL; 7.5 MG, QD; 30 MG QD
     Route: 048
  4. GABAPENTIN [Concomitant]
  5. ZOPICLONE [Concomitant]
  6. PIROXICAM [Concomitant]

REACTIONS (5)
  - DYSKINESIA [None]
  - DYSPHASIA [None]
  - DYSTONIA [None]
  - MUSCLE CRAMP [None]
  - PAIN [None]
